FAERS Safety Report 12979829 (Version 1)
Quarter: 2016Q4

REPORT INFORMATION
  Report Type: Spontaneous
  Country: US (occurrence: US)
  Receive Date: 20161128
  Receipt Date: 20161128
  Transmission Date: 20170207
  Serious: No
  Sender: FDA-Public Use
  Company Number: US-BAUSCH-BL-2016-018386

PATIENT
  Sex: Female

DRUGS (3)
  1. DEMSER [Suspect]
     Active Substance: METYROSINE
     Indication: PHAEOCHROMOCYTOMA
  2. DEMSER [Suspect]
     Active Substance: METYROSINE
     Indication: ADRENOCORTICAL INSUFFICIENCY ACUTE
     Route: 048
     Dates: start: 20160728
  3. DEMSER [Suspect]
     Active Substance: METYROSINE
     Indication: ADRENALECTOMY

REACTIONS (2)
  - Nausea [Not Recovered/Not Resolved]
  - Vomiting [Not Recovered/Not Resolved]

NARRATIVE: CASE EVENT DATE: 20160728
